FAERS Safety Report 24178616 (Version 1)
Quarter: 2024Q3

REPORT INFORMATION
  Report Type: Report from Study
  Country: US (occurrence: None)
  Receive Date: 20240806
  Receipt Date: 20240806
  Transmission Date: 20241017
  Serious: Yes (Hospitalization, Other)
  Sender: ASTRAZENECA
  Company Number: 2021A859852

PATIENT
  Sex: Female

DRUGS (7)
  1. LYNPARZA [Suspect]
     Active Substance: OLAPARIB
     Indication: Neoplasm malignant
     Route: 048
  2. TYLENOL [Concomitant]
     Active Substance: ACETAMINOPHEN
  3. VITAMIN D3 [Concomitant]
     Active Substance: CHOLECALCIFEROL
  4. OXYCODONE [Concomitant]
     Active Substance: OXYCODONE
  5. FOLIC ACID [Concomitant]
     Active Substance: FOLIC ACID
  6. SENNA [Concomitant]
     Active Substance: SENNA LEAF\SENNOSIDES\SENNOSIDES A AND B
  7. COLACE [Concomitant]
     Active Substance: DOCUSATE SODIUM

REACTIONS (4)
  - Brain neoplasm malignant [Unknown]
  - Fall [Unknown]
  - Pain [Unknown]
  - Pancreas infection [Unknown]
